FAERS Safety Report 5797086-9 (Version None)
Quarter: 2008Q3

REPORT INFORMATION
  Report Type: 
  Country: None (occurrence: None)
  Receive Date: 20080701
  Receipt Date: 20080626
  Transmission Date: 20090109
  Serious: Yes (Hospitalization)
  Sender: FDA-Public Use
  Company Number: RU-WATSON-2008-03866

PATIENT
  Age: 31 Year
  Sex: Female

DRUGS (3)
  1. TRELSTAR DEPOT [Suspect]
     Indication: ENDOMETRIOSIS
     Dosage: TOTAL OF 3 INJECTIONS
     Route: 030
     Dates: start: 20071001, end: 20071205
  2. PROGYNOVA                          /00045402/ [Concomitant]
     Indication: DRUG USE FOR UNKNOWN INDICATION
     Dosage: 2MG/DAY
     Dates: start: 20080528
  3. LEVOTHYROXINE SODIUM [Concomitant]
     Indication: DRUG USE FOR UNKNOWN INDICATION
     Dosage: UNK
     Dates: start: 20080401

REACTIONS (1)
  - MUSCULAR WEAKNESS [None]
